FAERS Safety Report 5402019-0 (Version None)
Quarter: 2007Q3

REPORT INFORMATION
  Report Type: 
  Country: None (occurrence: None)
  Receive Date: 20070726
  Receipt Date: 20070716
  Transmission Date: 20080115
  Serious: Yes (Disabling)
  Sender: FDA-Public Use
  Company Number: 2007AL002912

PATIENT
  Age: 3 Year
  Sex: Female

DRUGS (2)
  1. CITALOPRAM HYDROBROMIDE [Suspect]
  2. ST JOHN'S WORT [Concomitant]

REACTIONS (2)
  - ACQUIRED EPILEPTIC APHASIA [None]
  - TRANSMISSION OF DRUG VIA SEMEN [None]
